FAERS Safety Report 5076979-4 (Version None)
Quarter: 2006Q3

REPORT INFORMATION
  Report Type: 
  Country: None (occurrence: None)
  Receive Date: 20060810
  Receipt Date: 20060731
  Transmission Date: 20061208
  Serious: Yes (Hospitalization)
  Sender: FDA-Public Use
  Company Number: FR-GLAXOSMITHKLINE-B0433221A

PATIENT
  Age: 6 Year
  Sex: Female

DRUGS (4)
  1. SERETIDE [Suspect]
     Dosage: 1PUFF PER DAY
     Route: 055
     Dates: start: 20050501
  2. VENTOLIN [Suspect]
     Route: 055
     Dates: start: 20040501
  3. SINGULAIR [Suspect]
     Dosage: 5MG PER DAY
     Route: 048
     Dates: start: 20051004, end: 20060706
  4. NEXIUM [Suspect]
     Dosage: 1UNIT PER DAY
     Route: 048
     Dates: start: 20051121

REACTIONS (2)
  - HAEMATOMA [None]
  - PLATELET ADHESIVENESS DECREASED [None]
